FAERS Safety Report 5383825-8 (Version None)
Quarter: 2007Q3

REPORT INFORMATION
  Report Type: 
  Country: None (occurrence: None)
  Receive Date: 20070706
  Receipt Date: 20070626
  Transmission Date: 20080115
  Serious: Yes (Hospitalization)
  Sender: FDA-Public Use
  Company Number: 2007BI012454

PATIENT
  Age: 65 Year
  Sex: Female

DRUGS (8)
  1. NATALIZUMAB [Suspect]
     Indication: MULTIPLE SCLEROSIS
     Dosage: 300 MG; QM; IV
     Route: 042
     Dates: start: 20061215
  2. AVONEX [Concomitant]
  3. RESTORIL [Concomitant]
  4. NORCO [Concomitant]
  5. PRAVACHOL [Concomitant]
  6. PROZAC [Concomitant]
  7. PROVIGIL [Concomitant]
  8. NORTRIPTYLINE HCL [Concomitant]

REACTIONS (2)
  - HEAD INJURY [None]
  - MULTIPLE SCLEROSIS [None]
